FAERS Safety Report 8339118-X (Version None)
Quarter: 2012Q2

REPORT INFORMATION
  Report Type: 
  Country: None (occurrence: None)
  Receive Date: 20120507
  Receipt Date: 20120503
  Transmission Date: 20120825
  Serious: No
  Sender: FDA-Public Use
  Company Number: US-PFIZER INC-2012109171

PATIENT
  Sex: Male
  Weight: 83.9 kg

DRUGS (5)
  1. FELODIPINE [Concomitant]
     Indication: HYPERTENSION
     Dosage: 10 MG, UNK
  2. CARVEDILOL [Concomitant]
     Indication: HYPERTENSION
     Dosage: 12.5 MG, 2X/DAY
  3. SUTENT [Suspect]
     Indication: RENAL CANCER
     Dosage: 37.5 MG(25MG AND 12.5MG), 1X/DAY
     Route: 048
     Dates: start: 20120101
  4. LISINOPRIL [Concomitant]
     Indication: HYPERTENSION
     Dosage: 20 MG, UNK
  5. ATORVASTATIN [Concomitant]
     Indication: BLOOD CHOLESTEROL INCREASED
     Dosage: UNK

REACTIONS (3)
  - ABDOMINAL DISCOMFORT [None]
  - ABDOMINAL PAIN UPPER [None]
  - DIARRHOEA [None]
